FAERS Safety Report 15879049 (Version 7)
Quarter: 2019Q3

REPORT INFORMATION
  Report Type: Spontaneous
  Country: ES (occurrence: ES)
  Receive Date: 20190128
  Receipt Date: 20190916
  Transmission Date: 20191004
  Serious: Yes (Hospitalization, Other)
  Sender: FDA-Public Use
  Company Number: ES-SA-2019SA019581

PATIENT
  Age: 44 Year
  Sex: Male

DRUGS (4)
  1. SEPTRIN [Concomitant]
     Active Substance: SULFAMETHOXAZOLE\TRIMETHOPRIM
     Dosage: 1 DF, TIW
     Route: 065
  2. LEMTRADA [Suspect]
     Active Substance: ALEMTUZUMAB
     Dosage: 36 MG (CYCLIC), 1 VIAL OF 1.2 ML
     Route: 042
     Dates: start: 20181029, end: 20181031
  3. LEMTRADA [Suspect]
     Active Substance: ALEMTUZUMAB
     Indication: RELAPSING-REMITTING MULTIPLE SCLEROSIS
     Dosage: UNK
     Route: 042
     Dates: start: 20171002, end: 20171006
  4. ACYCLOVIR [ACICLOVIR] [Concomitant]
     Active Substance: ACYCLOVIR
     Indication: PROPHYLAXIS
     Dosage: 200 MG, Q12H
     Route: 065

REACTIONS (17)
  - Cholestasis [Recovering/Resolving]
  - Hepatomegaly [Recovering/Resolving]
  - Jaundice [Recovering/Resolving]
  - Leukopenia [Unknown]
  - Malaise [Recovering/Resolving]
  - Hyperbilirubinaemia [Recovering/Resolving]
  - Rash [Recovered/Resolved]
  - Eosinophilia [Unknown]
  - Vanishing bile duct syndrome [Unknown]
  - Anaemia [Recovering/Resolving]
  - Hypertriglyceridaemia [Recovering/Resolving]
  - Pancytopenia [Unknown]
  - Pyrexia [Unknown]
  - Haemoglobin decreased [Recovering/Resolving]
  - Haemophagocytic lymphohistiocytosis [Recovering/Resolving]
  - Natural killer cell count decreased [Recovering/Resolving]
  - Hyperferritinaemia [Recovering/Resolving]

NARRATIVE: CASE EVENT DATE: 2018
